FAERS Safety Report 8330570 (Version 6)
Quarter: 2013Q1

REPORT INFORMATION
  Report Type: Spontaneous
  Country: FR (occurrence: None)
  Receive Date: 20120103
  Receipt Date: 20130228
  Transmission Date: 20140127
  Serious: Yes (Other)
  Sender: FDA-Public Use
  Company Number: JPI-P-000457

PATIENT
  Age: 50 Year
  Sex: Female

DRUGS (4)
  1. XYREM [Suspect]
     Indication: SLEEP DISORDER
     Dosage: 6;7;7.5;9 GM (3;3.5;4.5;8 GM, 2 IN 1 D) ORAL
     Route: 048
     Dates: start: 20060216, end: 20061108
  2. XYREM [Suspect]
     Indication: CATAPLEXY
     Dosage: 6;7;7.5;9 GM (3;3.5;4.5;8 GM, 2 IN 1 D) ORAL
     Route: 048
     Dates: start: 20060216, end: 20061108
  3. MODAFINIL (TABLETS) [Concomitant]
  4. CLOMIPRAMINE HYDROCHLORIDE (TABLETS) [Concomitant]

REACTIONS (14)
  - Headache [None]
  - Cataplexy [None]
  - Fatigue [None]
  - Somnolence [None]
  - Fall [None]
  - Gait disturbance [None]
  - Paraesthesia [None]
  - Feeling drunk [None]
  - Nausea [None]
  - Spinal compression fracture [None]
  - Wrist fracture [None]
  - Somnambulism [None]
  - Loss of consciousness [None]
  - Memory impairment [None]
